FAERS Safety Report 7793155-2 (Version None)
Quarter: 2011Q4

REPORT INFORMATION
  Report Type: 
  Country: None (occurrence: None)
  Receive Date: 20111003
  Receipt Date: 20110926
  Transmission Date: 20120403
  Serious: Yes (Death)
  Sender: FDA-Public Use
  Company Number: GB-PFIZER INC-2011219671

PATIENT
  Age: 32 Year
  Sex: Male

DRUGS (7)
  1. CLOBAZAM [Concomitant]
  2. PHENYTOIN SODIUM [Concomitant]
  3. MORPHINE SULFATE [Suspect]
     Dosage: 80 MG, DAILY
     Route: 048
  4. FLUOXETINE [Concomitant]
  5. MORPHINE SULFATE [Suspect]
     Indication: HEADACHE
     Dosage: 40 MG, 2X/DAY
     Route: 048
     Dates: start: 20060117
  6. TEMAZEPAM [Concomitant]
  7. OXCARBAZEPINE [Concomitant]

REACTIONS (4)
  - TOXICITY TO VARIOUS AGENTS [None]
  - ACCIDENTAL OVERDOSE [None]
  - RESPIRATORY ARREST [None]
  - EPILEPSY [None]
